FAERS Safety Report 5651995-X (Version None)
Quarter: 2008Q1

REPORT INFORMATION
  Report Type: 
  Country: None (occurrence: None)
  Receive Date: 20080305
  Receipt Date: 20080229
  Transmission Date: 20080703
  Serious: No
  Sender: FDA-Public Use
  Company Number: GB-PFIZER INC-2008006306

PATIENT
  Sex: Female

DRUGS (2)
  1. SOLU-CORTEF [Suspect]
  2. METHYLPREDNISOLONE ACETATE [Suspect]
     Route: 042

REACTIONS (1)
  - WRONG DRUG ADMINISTERED [None]
